FAERS Safety Report 17928704 (Version 1)
Quarter: 2020Q2

REPORT INFORMATION
  Report Type: Spontaneous
  Country: US (occurrence: US)
  Receive Date: 20200622
  Receipt Date: 20200622
  Transmission Date: 20200714
  Serious: Yes (Hospitalization)
  Sender: FDA-Public Use
  Company Number: None

PATIENT
  Age: 40 Year
  Sex: Male
  Weight: 164 kg

DRUGS (1)
  1. CHLORTHALIDONE (CHLORTHALIDONE 50MG TAB) [Suspect]
     Active Substance: CHLORTHALIDONE
     Indication: HYPERTENSION
     Route: 048
     Dates: start: 20190919, end: 20200611

REACTIONS (5)
  - Asthenia [None]
  - Hypophosphataemia [None]
  - Hypokalaemia [None]
  - Hyponatraemia [None]
  - Dehydration [None]

NARRATIVE: CASE EVENT DATE: 20200611
